FAERS Safety Report 23592423 (Version 1)
Quarter: 2024Q1

REPORT INFORMATION
  Report Type: Spontaneous
  Country: BG (occurrence: None)
  Receive Date: 20240304
  Receipt Date: 20240304
  Transmission Date: 20240410
  Serious: Yes (Life-Threatening, Hospitalization, Other)
  Sender: FDA-Public Use
  Company Number: 2024A048981

PATIENT
  Sex: Male

DRUGS (1)
  1. IMFINZI [Suspect]
     Active Substance: DURVALUMAB
     Route: 042

REACTIONS (5)
  - Pleural effusion [Unknown]
  - Pneumonia viral [Unknown]
  - Acute respiratory failure [Unknown]
  - Pericardial effusion [Unknown]
  - COVID-19 [Unknown]
